FAERS Safety Report 5441639-4 (Version None)
Quarter: 2007Q3

REPORT INFORMATION
  Report Type: 
  Country: None (occurrence: None)
  Receive Date: 20070829
  Receipt Date: 20070814
  Transmission Date: 20080115
  Serious: Yes (Other)
  Sender: FDA-Public Use
  Company Number: 2007RR-09421

PATIENT
  Age: 53 Week
  Sex: Male

DRUGS (9)
  1. METRONIDAZOLE [Suspect]
  2. AUGMENTIN '125' [Suspect]
  3. LEVOFLOXACIN [Suspect]
  4. GENTAMICIN [Suspect]
  5. ACETAMINOPHEN [Suspect]
  6. VANCOMYCIN [Suspect]
  7. DICLOFENAC SODIUM (DICLOFENAC) [Concomitant]
  8. METOCLOPRAMIDE [Concomitant]
  9. OMEPRAZOLE [Concomitant]

REACTIONS (5)
  - DISORIENTATION [None]
  - GENERAL PHYSICAL HEALTH DETERIORATION [None]
  - METABOLIC ACIDOSIS [None]
  - MYOCARDIAL INFARCTION [None]
  - URINE ABNORMALITY [None]
